FAERS Safety Report 5127302-8 (Version None)
Quarter: 2006Q4

REPORT INFORMATION
  Report Type: 
  Country: None (occurrence: None)
  Receive Date: 20061013
  Receipt Date: 20061003
  Transmission Date: 20070319
  Serious: Yes (Hospitalization)
  Sender: FDA-Public Use
  Company Number: JP-ABBOTT-06P-087-0345781-00

PATIENT
  Age: 34 Year
  Sex: Male

DRUGS (4)
  1. CEFZON [Suspect]
     Indication: DRUG USE FOR UNKNOWN INDICATION
     Dates: start: 20060202
  2. LOXOPROFEN [Suspect]
     Indication: DRUG USE FOR UNKNOWN INDICATION
     Route: 048
     Dates: start: 20060202
  3. PL GRAN. [Concomitant]
     Indication: NASOPHARYNGITIS
     Dates: start: 20060202
  4. MOXIFLOXACIN HYDROCHLORIDE [Concomitant]
     Indication: DRUG USE FOR UNKNOWN INDICATION
     Dates: start: 20060212

REACTIONS (5)
  - GLOMERULONEPHRITIS ACUTE [None]
  - HAEMODIALYSIS [None]
  - NEPHRITIS INTERSTITIAL [None]
  - RENAL FAILURE ACUTE [None]
  - SKIN EXFOLIATION [None]
